FAERS Safety Report 11003895 (Version 3)
Quarter: 2015Q2

REPORT INFORMATION
  Report Type: Spontaneous
  Country: FR (occurrence: FR)
  Receive Date: 20150409
  Receipt Date: 20150611
  Transmission Date: 20150821
  Serious: Yes (Life-Threatening, Hospitalization)
  Sender: FDA-Public Use
  Company Number: FR-JNJFOC-20150402758

PATIENT
  Age: 47 Year
  Sex: Male
  Weight: 85 kg

DRUGS (2)
  1. CONCERTA [Suspect]
     Active Substance: METHYLPHENIDATE HYDROCHLORIDE
     Indication: ATTENTION DEFICIT/HYPERACTIVITY DISORDER
     Dosage: VARIABLE WITHIN 50 AND 75 MG PER DAY
     Route: 048
     Dates: start: 2010, end: 20150212
  2. LYSANXIA [Concomitant]
     Active Substance: PRAZEPAM
     Indication: ANXIETY
     Route: 048

REACTIONS (4)
  - Intentional product misuse [Unknown]
  - Product use issue [Unknown]
  - Myocardial infarction [Recovered/Resolved with Sequelae]
  - Depression [Unknown]

NARRATIVE: CASE EVENT DATE: 20150212
